FAERS Safety Report 17579864 (Version 1)
Quarter: 2020Q1

REPORT INFORMATION
  Report Type: Spontaneous
  Country: FR (occurrence: FR)
  Receive Date: 20200325
  Receipt Date: 20200325
  Transmission Date: 20200409
  Serious: Yes (Hospitalization)
  Sender: FDA-Public Use
  Company Number: FR-TEVA-2020-FR-1208942

PATIENT
  Age: 47 Year
  Sex: Female
  Weight: 105 kg

DRUGS (4)
  1. NEBIVOLOL. [Suspect]
     Active Substance: NEBIVOLOL
     Indication: POISONING DELIBERATE
     Dosage: 100 MG
     Route: 048
     Dates: start: 20200218, end: 20200218
  2. CODOLIPRANE 500 MG/30 MG, COMPRIM? EFFERVESCENT S?CABLE [Suspect]
     Active Substance: ACETAMINOPHEN\CODEINE PHOSPHATE
     Indication: POISONING DELIBERATE
     Dosage: 20 DOSAGE FORMS
     Route: 048
     Dates: start: 20200218, end: 20200218
  3. BROMAZEPAM [Suspect]
     Active Substance: BROMAZEPAM
     Indication: POISONING DELIBERATE
     Dosage: 36 MG
     Route: 048
     Dates: start: 20200218, end: 20200218
  4. LUMIRELAX 500 MG, COMPRIME [Suspect]
     Active Substance: METHOCARBAMOL
     Indication: POISONING DELIBERATE
     Dosage: 4 DOSAGE FORMS
     Route: 048
     Dates: start: 20200218, end: 20200218

REACTIONS (3)
  - Bradycardia [Recovered/Resolved]
  - Hypotension [Recovered/Resolved]
  - Hypothermia [Recovered/Resolved]

NARRATIVE: CASE EVENT DATE: 20200218
